FAERS Safety Report 5622877-4 (Version None)
Quarter: 2008Q1

REPORT INFORMATION
  Report Type: 
  Country: None (occurrence: None)
  Receive Date: 20080207
  Receipt Date: 20080207
  Transmission Date: 20080703
  Serious: Yes (Life-Threatening, Hospitalization, Other)
  Sender: FDA-Public Use
  Company Number: None

PATIENT
  Sex: Male
  Weight: 90.7194 kg

DRUGS (2)
  1. DILANTIN [Suspect]
     Indication: CONVULSION
     Dosage: 400 MG  MONDAY  ORAL;  300 MG TUES } SUN ORAL
     Route: 048
     Dates: start: 20020501
  2. DILANTIN [Suspect]
     Indication: CONVULSION
     Dosage: 400 MG  MONDAY  ORAL;  300 MG TUES } SUN ORAL
     Route: 048
     Dates: start: 20080111

REACTIONS (1)
  - GRAND MAL CONVULSION [None]
